FAERS Safety Report 4823723-9 (Version None)
Quarter: 2005Q4

REPORT INFORMATION
  Report Type: 
  Country: None (occurrence: None)
  Receive Date: 20051109
  Receipt Date: 20051107
  Transmission Date: 20060501
  Serious: Yes (Other)
  Sender: FDA-Public Use
  Company Number: 200514057EU

PATIENT
  Age: 33 Year
  Sex: Male

DRUGS (3)
  1. NICORETTE [Suspect]
     Route: 002
     Dates: start: 20040101, end: 20050501
  2. NICOTINE [Suspect]
     Dosage: 5Z PER DAY
     Route: 055
     Dates: start: 20050501
  3. UNSPECIFIED MEDICATION [Concomitant]

REACTIONS (3)
  - DRUG DEPENDENCE [None]
  - DRUG INEFFECTIVE [None]
  - MEDICATION ERROR [None]
